FAERS Safety Report 14919357 (Version 3)
Quarter: 2018Q2

REPORT INFORMATION
  Report Type: Report from Study
  Country: JP (occurrence: JP)
  Receive Date: 20180521
  Receipt Date: 20180528
  Transmission Date: 20180711
  Serious: Yes (Death, Hospitalization, Other)
  Sender: FDA-Public Use
  Company Number: JP-BRISTOL-MYERS SQUIBB COMPANY-BMS-2017-066137

PATIENT
  Age: 85 Year
  Sex: Female

DRUGS (1)
  1. NIVOLUMAB [Suspect]
     Active Substance: NIVOLUMAB
     Indication: HODGKIN^S DISEASE
     Dosage: 3 MG/KG, UNK
     Route: 041
     Dates: start: 20170620, end: 20180222

REACTIONS (4)
  - Malignant neoplasm progression [Fatal]
  - Neuropathy peripheral [Not Recovered/Not Resolved]
  - Femoral neck fracture [Recovered/Resolved]
  - Hypoaesthesia [Recovered/Resolved]

NARRATIVE: CASE EVENT DATE: 201707
